FAERS Safety Report 24936432 (Version 1)
Quarter: 2025Q1

REPORT INFORMATION
  Report Type: Spontaneous
  Country: US (occurrence: None)
  Receive Date: 20250205
  Receipt Date: 20250205
  Transmission Date: 20250408
  Serious: No
  Sender: FDA-CTU
  Company Number: None

PATIENT
  Sex: Male

DRUGS (13)
  1. CLOZAPINE [Suspect]
     Active Substance: CLOZAPINE
     Indication: Psychotic disorder
     Route: 048
  2. CLOZAPINE [Suspect]
     Active Substance: CLOZAPINE
     Route: 048
  3. VITAMIN D3 [Concomitant]
     Active Substance: CHOLECALCIFEROL
  4. METAMUCIL [Concomitant]
     Active Substance: PLANTAGO SEED
  5. FISH OIL [Concomitant]
     Active Substance: FISH OIL
  6. Colace (No crush) [Concomitant]
  7. FLUZONE [Concomitant]
     Active Substance: INFLUENZA A VIRUS A/CALIFORNIA/7/2009 X-179A (H1N1) ANTIGEN (FORMALDEHYDE INACTIVATED)\INFLUENZA A V
  8. Lidex cream [Concomitant]
  9. ACETAMINOPHEN [Concomitant]
     Active Substance: ACETAMINOPHEN
  10. MYLANTA [Concomitant]
     Active Substance: ALUMINUM HYDROXIDE\DIMETHICONE\MAGNESIUM HYDROXIDE
  11. Sunscreen SPF 30 or greater [Concomitant]
  12. Cetaphil cream [Concomitant]
  13. HEAD AND SHOULDERS [Concomitant]
     Active Substance: PYRITHIONE ZINC

REACTIONS (8)
  - Asthenia [None]
  - Somnolence [None]
  - Restless legs syndrome [None]
  - Dry skin [None]
  - Heart rate irregular [None]
  - Pollakiuria [None]
  - Salivary hypersecretion [None]
  - Intentional product use issue [None]
